FAERS Safety Report 9063782 (Version 1)
Quarter: 2013Q1

REPORT INFORMATION
  Report Type: Report from Study
  Country: GB (occurrence: GB)
  Receive Date: 20130213
  Receipt Date: 20130213
  Transmission Date: 20140127
  Serious: Yes (Death, Life-Threatening)
  Sender: FDA-Public Use
  Company Number: GB-CELGENEUS-167-21880-13020762

PATIENT
  Age: 80 Year
  Sex: Male

DRUGS (4)
  1. REVLIMID [Suspect]
     Indication: PLASMA CELL MYELOMA
     Route: 048
     Dates: start: 20120304
  2. REVLIMID [Suspect]
     Route: 048
     Dates: end: 20120707
  3. DEXAMETHASONE [Concomitant]
     Indication: PLASMA CELL MYELOMA
     Route: 065
  4. DEXAMETHASONE [Concomitant]
     Dosage: DOSE REDUCED TO 0MG BY THE END OF THERAPY
     Route: 065

REACTIONS (4)
  - Death [Fatal]
  - Leukopenia [Unknown]
  - Neutropenia [Unknown]
  - Thrombocytopenia [Unknown]
